FAERS Safety Report 5270732-4 (Version None)
Quarter: 2007Q1

REPORT INFORMATION
  Report Type: 
  Country: None (occurrence: None)
  Receive Date: 20070319
  Receipt Date: 20070319
  Transmission Date: 20070707
  Serious: Yes (Other)
  Sender: FDA-Public Use
  Company Number: None

PATIENT
  Age: 65 Year
  Sex: Female
  Weight: 104.3273 kg

DRUGS (6)
  1. LOVENOX [Suspect]
     Dosage: 100MG  BID SQ
     Route: 058
     Dates: start: 20070308, end: 20070313
  2. NEXIUM [Concomitant]
  3. DEMEDEX [Concomitant]
  4. POTASSIUM ACETATE [Concomitant]
  5. CELEXA [Concomitant]
  6. REVATIO [Concomitant]

REACTIONS (2)
  - BARRETT'S OESOPHAGUS [None]
  - HAEMATOMA [None]
